FAERS Safety Report 24936439 (Version 3)
Quarter: 2025Q3

REPORT INFORMATION
  Report Type: Other
  Country: US (occurrence: US)
  Receive Date: 20250206
  Receipt Date: 20250929
  Transmission Date: 20251021
  Serious: No
  Sender: TRAVERE THERAPEUTICS
  Company Number: US-TRAVERE-2025TVT00120

PATIENT
  Age: 72 Year
  Sex: Female

DRUGS (4)
  1. FILSPARI [Suspect]
     Active Substance: SPARSENTAN
     Indication: Haematuria
     Dosage: 200 MG 1 TABLET, ONCE A DAY FOR 1-14 DAYS.
     Route: 048
  2. FILSPARI [Suspect]
     Active Substance: SPARSENTAN
     Indication: Chronic kidney disease
     Dosage: 200 MG 2 TABLETS, ONCE A DAY FOR 15-30 DAYS?EXPIRY DATE: 30-MAY-2026
     Route: 048
     Dates: start: 202412
  3. FILSPARI [Suspect]
     Active Substance: SPARSENTAN
     Indication: Proteinuria
  4. FILSPARI [Suspect]
     Active Substance: SPARSENTAN
     Indication: IgA nephropathy

REACTIONS (3)
  - Off label use [Unknown]
  - Dizziness [None]
  - Drug ineffective [Unknown]

NARRATIVE: CASE EVENT DATE: 20250525
